FAERS Safety Report 10190250 (Version 1)
Quarter: 2014Q2

REPORT INFORMATION
  Report Type: Report from Study
  Country: US (occurrence: US)
  Receive Date: 20140522
  Receipt Date: 20140522
  Transmission Date: 20141212
  Serious: Yes (Other)
  Sender: FDA-Public Use
  Company Number: PHEH2014US010402

PATIENT
  Sex: Female

DRUGS (18)
  1. EXFORGE [Suspect]
     Dosage: 5.160 MG, ONCE DAILY
     Route: 048
  2. FUROSEMIDE [Concomitant]
     Dosage: UNK
  3. DULERA [Concomitant]
     Dosage: UNK
  4. LOPRESSOR [Concomitant]
     Dosage: UNK
  5. JANUMET [Concomitant]
     Dosage: UNK
  6. GABAPENTIN [Concomitant]
  7. LISINOPRIL [Concomitant]
     Dosage: UNK
  8. HYDROCODONE [Concomitant]
     Dosage: UNK
  9. MYOSIDE [Concomitant]
     Dosage: UNK
  10. RANITIDINE [Concomitant]
     Dosage: UNK
  11. CITALOPRAM [Concomitant]
     Dosage: UNK
  12. DILTIAZEM [Concomitant]
     Dosage: UNK
  13. LOPID [Concomitant]
     Dosage: UNK
  14. METOPROLOL TARTRATE [Concomitant]
     Dosage: UNK
  15. FERROUS SULFATE [Concomitant]
     Dosage: UNK
  16. GAVICON                            /01291401/ [Concomitant]
     Dosage: UNK
  17. HYDROCHLOROTHIAZIDE [Concomitant]
     Dosage: UNK
  18. LASIX [Concomitant]
     Dosage: UNK

REACTIONS (10)
  - Type 2 diabetes mellitus [Unknown]
  - Angina pectoris [Unknown]
  - Neuropathy peripheral [Unknown]
  - Hyporeflexia [Unknown]
  - Onychomycosis [Unknown]
  - Ingrowing nail [Unknown]
  - Hyperkeratosis [Unknown]
  - Obesity [Unknown]
  - Hyperlipidaemia [Unknown]
  - Hypertension [Unknown]
